FAERS Safety Report 6632224-7 (Version None)
Quarter: 2010Q1

REPORT INFORMATION
  Report Type: 
  Country: None (occurrence: None)
  Receive Date: 20100312
  Receipt Date: 20100304
  Transmission Date: 20100710
  Serious: Yes (Hospitalization)
  Sender: FDA-Public Use
  Company Number: GXKR2010US02687

PATIENT
  Age: 61 Year
  Sex: Male

DRUGS (8)
  1. VENLAFAXINE [Suspect]
     Indication: MAJOR DEPRESSION
     Dosage: 75 MG, BID
     Route: 065
  2. VENLAFAXINE [Interacting]
     Dosage: 100 MG, BID
     Route: 065
  3. METHADONE (NGX) [Interacting]
     Indication: BACK PAIN
     Route: 065
  4. CIPROFLOXACIN [Interacting]
     Dosage: UNK
     Route: 065
  5. METOCLOPRAMIDE [Concomitant]
  6. CYPROHEPTADINE HCL [Concomitant]
     Dosage: 8 MG, BID
     Route: 048
  7. OXYCODONE [Concomitant]
     Indication: PAIN
  8. HYDROMORPHONE HCL [Concomitant]

REACTIONS (13)
  - ABASIA [None]
  - ANXIETY [None]
  - ATAXIA [None]
  - DIARRHOEA [None]
  - DRUG INTERACTION [None]
  - FALL [None]
  - HYPERHIDROSIS [None]
  - HYPERREFLEXIA [None]
  - MYOCLONUS [None]
  - SEROTONIN SYNDROME [None]
  - TACHYCARDIA [None]
  - TACHYPNOEA [None]
  - TREMOR [None]
